FAERS Safety Report 5423928-2 (Version None)
Quarter: 2007Q3

REPORT INFORMATION
  Report Type: 
  Country: None (occurrence: None)
  Receive Date: 20070823
  Receipt Date: 20070817
  Transmission Date: 20080115
  Serious: Yes (Life-Threatening)
  Sender: FDA-Public Use
  Company Number: JP-ASTRAZENECA-2007SE04514

PATIENT
  Age: 94 Year
  Sex: Female

DRUGS (8)
  1. CANDESARTAN CILEXETIL [Suspect]
     Indication: HYPERTENSION
     Route: 048
     Dates: start: 20070727, end: 20070817
  2. LASIX [Concomitant]
     Route: 065
  3. LANIRAPID [Concomitant]
     Route: 048
  4. ALMATOL [Concomitant]
     Route: 048
  5. ASPIRIN [Concomitant]
     Route: 048
  6. KALGUT [Concomitant]
     Route: 048
  7. ASPARA K [Concomitant]
     Route: 065
  8. MILLISTAPE(NITROGLYCERIN) [Concomitant]
     Route: 062

REACTIONS (1)
  - RHABDOMYOLYSIS [None]
